FAERS Safety Report 11242663 (Version 2)
Quarter: 2015Q3

REPORT INFORMATION
  Report Type: Report from Study
  Country: DE (occurrence: DE)
  Receive Date: 20150707
  Receipt Date: 20150715
  Transmission Date: 20151125
  Serious: Yes (Hospitalization, Disabling)
  Sender: FDA-Public Use
  Company Number: PHHO2015DE011072

PATIENT
  Age: 62 Year
  Sex: Female
  Weight: 57.5 kg

DRUGS (4)
  1. PREDNISON [Suspect]
     Active Substance: PREDNISONE
     Indication: LUNG TRANSPLANT
     Dosage: 7.5 MG, QD (1-0-0)
     Route: 065
     Dates: start: 20140528
  2. CELLCEPT [Suspect]
     Active Substance: MYCOPHENOLATE MOFETIL\MYCOPHENOLATE MOFETIL HYDROCHLORIDE
     Indication: LUNG TRANSPLANT
     Dosage: 1000 MG (500X2), BID (2-0-2)
     Route: 065
     Dates: start: 20140528
  3. SANDIMMUN [Suspect]
     Active Substance: CYCLOSPORINE
     Indication: LUNG TRANSPLANT
     Dosage: 60 MG, BID (1-0-1)
     Route: 065
     Dates: start: 20140528
  4. NO TREATMENT RECEIVED [Suspect]
     Active Substance: UNSPECIFIED INGREDIENT
     Indication: LUNG TRANSPLANT
     Dosage: NO TREATMENT
     Route: 065

REACTIONS (1)
  - Herpes virus infection [Not Recovered/Not Resolved]

NARRATIVE: CASE EVENT DATE: 20150626
